FAERS Safety Report 16679913 (Version 2)
Quarter: 2019Q3

REPORT INFORMATION
  Report Type: Spontaneous
  Country: US (occurrence: US)
  Receive Date: 20190807
  Receipt Date: 20190925
  Transmission Date: 20191004
  Serious: No
  Sender: FDA-Public Use
  Company Number: US-BAUSCH-BL-2019-020841

PATIENT
  Age: 31 Year
  Sex: Male
  Weight: 90.8 kg

DRUGS (7)
  1. VITAMIN D [Concomitant]
     Active Substance: VITAMIN D NOS
     Indication: PRODUCT USED FOR UNKNOWN INDICATION
     Dosage: STARTED 2 YEARS AGO
     Dates: start: 2017
  2. AMLODIPINE BESYLATE. [Concomitant]
     Active Substance: AMLODIPINE BESYLATE
     Indication: BLOOD PRESSURE ABNORMAL
     Dosage: STARTED 2 YEARS AGO
     Dates: start: 2017
  3. LOTEMAX [Concomitant]
     Active Substance: LOTEPREDNOL ETABONATE
     Indication: CONJUNCTIVITIS ALLERGIC
     Dosage: FOR YEARS,SINCE 2015 OFF AND ON
     Route: 031
     Dates: start: 2015
  4. NASACORT ALLERGY 24HR [Concomitant]
     Active Substance: TRIAMCINOLONE ACETONIDE
     Indication: PRODUCT USED FOR UNKNOWN INDICATION
     Dosage: STARTED: 24 HOUR 8 OR 9 MONTHS AGO
     Dates: start: 2018
  5. LUMIFY [Suspect]
     Active Substance: BRIMONIDINE TARTRATE
     Indication: OCULAR HYPERAEMIA
     Dosage: 2.5 ML CONTAINER USED AS NEEDED AS THE PATIENT WAS GOING OUT IT WAS NOT LIKE A REGULAR THING FOR HIM
     Route: 031
     Dates: start: 201907
  6. SOOTHE XP PRESERVATIVE FREE ADVANCED DRY EYE THERAPY [Concomitant]
     Indication: PRODUCT USED FOR UNKNOWN INDICATION
     Dosage: STARTED: 8 OR 9 MONTHS AGO
     Dates: start: 2018
  7. LOTEMAX [Concomitant]
     Active Substance: LOTEPREDNOL ETABONATE
     Dosage: NOW TAKING IT REGULARLY TWICE A DAY
     Route: 031

REACTIONS (5)
  - Product storage error [Unknown]
  - Product deposit [Unknown]
  - Sleep disorder [Not Recovered/Not Resolved]
  - Product physical consistency issue [Unknown]
  - Product container issue [Unknown]

NARRATIVE: CASE EVENT DATE: 201907
